FAERS Safety Report 19872379 (Version 1)
Quarter: 2021Q3

REPORT INFORMATION
  Report Type: Other
  Country: SA (occurrence: SA)
  Receive Date: 20210923
  Receipt Date: 20210923
  Transmission Date: 20211014
  Serious: Yes (Other)
  Sender: FDA-Public Use
  Company Number: SA-ROCHE-2913853

PATIENT
  Age: 59 Year
  Sex: Female

DRUGS (1)
  1. ALTEPLASE. [Suspect]
     Active Substance: ALTEPLASE
     Indication: EMBOLIC STROKE
     Dosage: AT A DOSE OF 0.9MG/KG WAS STARTED 57 MINS AFTER ONSET
     Route: 042

REACTIONS (1)
  - Therapy non-responder [Unknown]
